FAERS Safety Report 9192362 (Version 2)
Quarter: 2013Q4

REPORT INFORMATION
  Report Type: Spontaneous
  Country: US (occurrence: US)
  Receive Date: 20130327
  Receipt Date: 20131126
  Transmission Date: 20140711
  Serious: Yes (Other)
  Sender: FDA-Public Use
  Company Number: US-BAYER-2013-038219

PATIENT
  Age: 26 Year
  Sex: Female

DRUGS (17)
  1. YAZ [Suspect]
  2. YASMIN [Suspect]
  3. OCELLA [Suspect]
  4. ATIVAN [Concomitant]
     Indication: ANXIETY
     Dosage: 0.5 MG, EVERY 8 HOURS AS NEEDED
     Route: 048
  5. ATIVAN [Concomitant]
     Indication: INSOMNIA
  6. CELEXA [Concomitant]
     Dosage: 40 MG, DAILY
     Route: 048
  7. DARVOCET [Concomitant]
     Indication: ABDOMINAL PAIN LOWER
  8. MIDRIN [Concomitant]
     Dosage: UNK UNK, PRN
  9. PRENATAL VITAMINS [Concomitant]
     Dosage: ONE DAILY
     Route: 048
  10. DOCUSATE SODIUM [Concomitant]
     Dosage: 100 MG, DAILY
     Route: 048
  11. AMBIEN [Concomitant]
     Indication: INSOMNIA
     Dosage: 5 TO 10 MG AT BEDTIME AS NEEDED
     Route: 048
  12. BENTYL [Concomitant]
     Dosage: 10 MG, EVERY 6 HOURS AS NEEDED
  13. ONDANSETRON [Concomitant]
     Dosage: 4 MG, UNK
  14. SERTRALINE [Concomitant]
     Dosage: 100 MG, UNK
  15. TRAZODONE [Concomitant]
     Dosage: 50 MG, UNK
  16. FLUCONAZOLE [Concomitant]
     Dosage: 150 MG, 2 TABLETS DISPENSED
  17. CEPHALEXIN [Concomitant]
     Dosage: 500 MG, 10 CAPSULES DISPENSED

REACTIONS (6)
  - Gallbladder injury [None]
  - Biliary dyskinesia [None]
  - Cholecystitis chronic [None]
  - Injury [None]
  - Pain [None]
  - Pain [None]
